FAERS Safety Report 10257299 (Version 1)
Quarter: 2014Q2

REPORT INFORMATION
  Report Type: Spontaneous
  Country: US (occurrence: None)
  Receive Date: 20140623
  Receipt Date: 20140623
  Transmission Date: 20141212
  Serious: Yes (Disabling)
  Sender: FDA-Public Use
  Company Number: None

PATIENT
  Age: 85 Year
  Sex: Female
  Weight: 61.24 kg

DRUGS (3)
  1. RED YEAST RICE [Suspect]
     Indication: BLOOD CHOLESTEROL INCREASED
     Dosage: ONCE DAILY?
     Dates: start: 20130501, end: 20130516
  2. RED YEAST RICE [Suspect]
     Indication: HIGH DENSITY LIPOPROTEIN INCREASED
     Dosage: ONCE DAILY?
     Dates: start: 20130501, end: 20130516
  3. RED YEAST RICE [Suspect]
     Dosage: ONCE DAILY?
     Dates: start: 20130501, end: 20130516

REACTIONS (3)
  - Pain [None]
  - Chest discomfort [None]
  - Exercise tolerance decreased [None]
